FAERS Safety Report 4356207-5 (Version None)
Quarter: 2004Q2

REPORT INFORMATION
  Report Type: 
  Country: None (occurrence: None)
  Receive Date: 20040511
  Receipt Date: 20040428
  Transmission Date: 20050107
  Serious: Yes (Other)
  Sender: FDA-Public Use
  Company Number: 200311131BCC

PATIENT
  Age: 64 Year
  Sex: Female
  Weight: 170.0989 kg

DRUGS (7)
  1. ALEVE (CAPLET) [Suspect]
     Indication: BACK PAIN
     Dosage: 440 MGM, TID, ORAL; 220-440 MG, TID, ORAL
     Route: 048
     Dates: start: 20030402
  2. ALEVE (CAPLET) [Suspect]
     Indication: BACK PAIN
     Dosage: 440 MGM, TID, ORAL; 220-440 MG, TID, ORAL
     Route: 048
     Dates: start: 20030403
  3. DOXYCYCLINE [Concomitant]
  4. KEFLEX [Concomitant]
  5. LASIX [Concomitant]
  6. IBUPROFEN [Concomitant]
  7. POTASSIUM SUPPLEMENT [Concomitant]

REACTIONS (3)
  - ABDOMINAL PAIN UPPER [None]
  - BLOOD URINE [None]
  - VAGINAL HAEMORRHAGE [None]
